FAERS Safety Report 12679137 (Version 2)
Quarter: 2016Q3

REPORT INFORMATION
  Report Type: Report from Study
  Country: US (occurrence: US)
  Receive Date: 20160824
  Receipt Date: 20160901
  Transmission Date: 20161109
  Serious: Yes (Other)
  Sender: FDA-Public Use
  Company Number: US-PAR PHARMACEUTICAL COMPANIES-2016SCPR015702

PATIENT

DRUGS (3)
  1. ETHINYLESTRADIOL W/NORETHINDRONE [Concomitant]
     Active Substance: ETHINYL ESTRADIOL\NORETHINDRONE
     Indication: CONTRACEPTION
     Dosage: 1.5/30, DAILY
     Route: 048
  2. RIVASTIGMINE TRANSDERMAL SYSTEM [Suspect]
     Active Substance: RIVASTIGMINE
     Dosage: UNK UNK, SINGLE
     Route: 062
     Dates: start: 20160714
  3. EXELON [Suspect]
     Active Substance: RIVASTIGMINE TARTRATE
     Dosage: UNK UNK, SINGLE
     Route: 062
     Dates: start: 20160714

REACTIONS (3)
  - Exposure during pregnancy [Unknown]
  - Abortion spontaneous [Unknown]
  - Pregnancy test positive [Unknown]

NARRATIVE: CASE EVENT DATE: 201607
